FAERS Safety Report 8028020-9 (Version None)
Quarter: 2012Q1

REPORT INFORMATION
  Report Type: 
  Country: None (occurrence: None)
  Receive Date: 20120104
  Receipt Date: 20111229
  Transmission Date: 20120608
  Serious: Yes (Other)
  Sender: FDA-Public Use
  Company Number: GER/UKI/11/0022487

PATIENT
  Age: 62 Year
  Sex: Female
  Weight: 55.33 kg

DRUGS (1)
  1. FLUOXETINE HYDROCHLORIDE [Suspect]
     Indication: PRODUCT USED FOR UNKNOWN INDICATION

REACTIONS (4)
  - MALAISE [None]
  - FEELING JITTERY [None]
  - FEELING ABNORMAL [None]
  - SMEAR CERVIX ABNORMAL [None]
